FAERS Safety Report 5517524-6 (Version None)
Quarter: 2007Q4

REPORT INFORMATION
  Report Type: 
  Country: None (occurrence: None)
  Receive Date: 20071114
  Receipt Date: 20071102
  Transmission Date: 20080405
  Serious: Yes (Death)
  Sender: FDA-Public Use
  Company Number: FR-BAXTER-2007BH007303

PATIENT
  Age: 80 Year
  Sex: Male

DRUGS (4)
  1. EXTRANEAL [Suspect]
     Indication: PERITONEAL DIALYSIS
     Route: 033
     Dates: start: 20030801, end: 20070611
  2. DIANEAL PD-1 [Suspect]
     Indication: PERITONEAL DIALYSIS
     Route: 033
     Dates: start: 20030401, end: 20070611
  3. ATENOLOL [Concomitant]
  4. PHYSIONEAL [Concomitant]
     Indication: PERITONEAL DIALYSIS
     Route: 033
     Dates: start: 20060301, end: 20060101

REACTIONS (3)
  - GASTROINTESTINAL PERFORATION [None]
  - PERITONEAL INFECTION [None]
  - SCLEROSING ENCAPSULATING PERITONITIS [None]
